FAERS Safety Report 22602939 (Version 1)
Quarter: 2023Q2

REPORT INFORMATION
  Report Type: Spontaneous
  Country: US (occurrence: US)
  Receive Date: 20230615
  Receipt Date: 20230615
  Transmission Date: 20230722
  Serious: Yes (Hospitalization, Other)
  Sender: FDA-Public Use
  Company Number: US-MACLEODS PHARMACEUTICALS US LTD-MAC2023041832

PATIENT

DRUGS (10)
  1. LEVOTHYROXINE [Suspect]
     Active Substance: LEVOTHYROXINE
     Indication: Primary hypothyroidism
     Dosage: 50 MILLIGRAM, QD
     Route: 042
  2. LEVOTHYROXINE [Suspect]
     Active Substance: LEVOTHYROXINE
     Indication: Euthyroid sick syndrome
     Dosage: UNK (ORAL ADMINISTRATION AT VARIOUS DOSES)
     Route: 048
  3. LEVOTHYROXINE [Suspect]
     Active Substance: LEVOTHYROXINE
     Dosage: 100 MICROGRAM, Q.W. (LT4 DOSE WAS 100 MG EVERY SUNDAY)
     Route: 048
  4. LEVOTHYROXINE [Suspect]
     Active Substance: LEVOTHYROXINE
     Dosage: 88 MICROGRAM, QD (88 MG ON ALL OTHER DAYS OF THE WEEK)
     Route: 048
  5. LEVOTHYROXINE [Suspect]
     Active Substance: LEVOTHYROXINE
     Dosage: 100 MICROGRAM, QD
     Route: 048
  6. LEVOTHYROXINE [Suspect]
     Active Substance: LEVOTHYROXINE
     Dosage: 100 MICROGRAM, QD (LT4 100 MG EVERY MORNING WHILE FASTING )
     Route: 048
  7. LEVOTHYROXINE [Suspect]
     Active Substance: LEVOTHYROXINE
     Dosage: 200 MICROGRAM, QD (INCREASED TO 200 MG)
     Route: 048
  8. LEVOTHYROXINE [Suspect]
     Active Substance: LEVOTHYROXINE
     Dosage: 300 MICROGRAM, QD (300 MG EVERY OTHER DAY)
     Route: 048
  9. LEVOTHYROXINE [Suspect]
     Active Substance: LEVOTHYROXINE
     Dosage: 250 MILLIGRAM, QD
     Route: 065
  10. CHOLECALCIFEROL [Concomitant]
     Active Substance: CHOLECALCIFEROL
     Indication: Product used for unknown indication
     Dosage: UNK UNIT, QD (1000UNITS)
     Route: 065

REACTIONS (5)
  - Sepsis [Recovered/Resolved]
  - Protein-losing gastroenteropathy [Unknown]
  - Lymphangiectasia [Unknown]
  - Eosinophilia [Unknown]
  - Gastroenteritis eosinophilic [Unknown]
